FAERS Safety Report 8597597-7 (Version None)
Quarter: 2012Q3

REPORT INFORMATION
  Report Type: 
  Country: None (occurrence: None)
  Receive Date: 20120816
  Receipt Date: 20120806
  Transmission Date: 20120928
  Serious: Yes (Disabling, Other)
  Sender: FDA-Public Use
  Company Number: US-BAYER-2012-065123

PATIENT
  Age: 37 Year
  Sex: Female

DRUGS (4)
  1. KETOCONAZOLE [Concomitant]
     Dosage: UNK UNK, BID
     Route: 061
  2. YAZ [Suspect]
     Dosage: UNK
     Dates: start: 20070201, end: 20080728
  3. KEFLEX [Concomitant]
     Dosage: 500 MG, TID FOR 10 DAYS
  4. ARMODAFINIL [Concomitant]
     Dosage: 200 MG, 1 Q DAY X 7 DAYS

REACTIONS (6)
  - INJURY [None]
  - ANHEDONIA [None]
  - DEEP VEIN THROMBOSIS [None]
  - DEFORMITY [None]
  - ANXIETY [None]
  - PAIN [None]
